FAERS Safety Report 8523271-9 (Version None)
Quarter: 2012Q3

REPORT INFORMATION
  Report Type: 
  Country: None (occurrence: None)
  Receive Date: 20120709
  Receipt Date: 20120627
  Transmission Date: 20120928
  Serious: Yes (Hospitalization)
  Sender: FDA-Public Use
  Company Number: DSA_58278_2012

PATIENT
  Age: 57 Year
  Sex: Male

DRUGS (6)
  1. DILTIAZEM HYDROCHLORIDE [Suspect]
     Indication: PRODUCT USED FOR UNKNOWN INDICATION
     Dosage: (DF)
  2. CAPERITIDE [Concomitant]
  3. FUROSEMIDE [Suspect]
     Indication: PRODUCT USED FOR UNKNOWN INDICATION
     Dosage: (DF)
  4. LORATADINE [Suspect]
     Indication: SEASONAL ALLERGY
     Dosage: (10 MG)
  5. AMIODARONE HCL [Suspect]
     Indication: TORSADE DE POINTES
     Dosage: (DF)
  6. DOBUTREX [Concomitant]

REACTIONS (8)
  - VENTRICULAR EXTRASYSTOLES [None]
  - TORSADE DE POINTES [None]
  - CONGESTIVE CARDIOMYOPATHY [None]
  - CARDIAC FAILURE [None]
  - TACHYCARDIA [None]
  - LONG QT SYNDROME [None]
  - SYNCOPE [None]
  - ATRIAL FIBRILLATION [None]
